FAERS Safety Report 5377843-3 (Version None)
Quarter: 2007Q2

REPORT INFORMATION
  Report Type: 
  Country: None (occurrence: None)
  Receive Date: 20070629
  Receipt Date: 20070619
  Transmission Date: 20071010
  Serious: Yes (Hospitalization)
  Sender: FDA-Public Use
  Company Number: 2007-158940-NL

PATIENT
  Age: 44 Year
  Sex: Female

DRUGS (4)
  1. MIRTAZAPINE [Suspect]
     Dosage: DF
     Dates: start: 20070411, end: 20070511
  2. PROMETHAZINE HCL [Concomitant]
  3. FOLIC ACID [Concomitant]
  4. OMEPRAZOLE [Concomitant]

REACTIONS (2)
  - HYDRONEPHROSIS [None]
  - URINARY TRACT INFECTION [None]
